FAERS Safety Report 5465294-2 (Version None)
Quarter: 2007Q3

REPORT INFORMATION
  Report Type: 
  Country: None (occurrence: None)
  Receive Date: 20070919
  Receipt Date: 20070919
  Transmission Date: 20080115
  Serious: Yes (Death)
  Sender: FDA-Public Use
  Company Number: None

PATIENT
  Age: 59 Year
  Sex: Female
  Weight: 122.4712 kg

DRUGS (1)
  1. HYDROCHLOROTHIAZIDE [Suspect]
     Indication: OEDEMA PERIPHERAL
     Dosage: 12.5MG ?QD PO
     Route: 048
     Dates: start: 20070606

REACTIONS (14)
  - ASTHENIA [None]
  - CARDIAC ARREST [None]
  - CHEST DISCOMFORT [None]
  - CYANOSIS [None]
  - DIZZINESS [None]
  - DYSPNOEA [None]
  - EOSINOPHIL COUNT INCREASED [None]
  - NAUSEA [None]
  - PALPITATIONS [None]
  - TREMOR [None]
  - TRYPTASE INCREASED [None]
  - VOMITING [None]
  - WHITE BLOOD CELL COUNT DECREASED [None]
  - WHITE BLOOD CELL COUNT INCREASED [None]
